FAERS Safety Report 6451106-7 (Version None)
Quarter: 2009Q4

REPORT INFORMATION
  Report Type: 
  Country: None (occurrence: None)
  Receive Date: 20091123
  Receipt Date: 20091118
  Transmission Date: 20100525
  Serious: Yes (Death, Hospitalization)
  Sender: FDA-Public Use
  Company Number: US-JNJFOC-20091105956

PATIENT
  Age: 6 Decade
  Sex: Male

DRUGS (3)
  1. PREZISTA [Suspect]
     Indication: HIV INFECTION
     Route: 048
  2. RITONAVIR [Concomitant]
     Indication: HIV INFECTION
     Route: 065
  3. HIV MEDICATION [Concomitant]
     Indication: HIV INFECTION
     Route: 065

REACTIONS (1)
  - HEPATITIS [None]
